FAERS Safety Report 5996724-5 (Version None)
Quarter: 2008Q4

REPORT INFORMATION
  Report Type: 
  Country: None (occurrence: None)
  Receive Date: 20081212
  Receipt Date: 20081124
  Transmission Date: 20090506
  Serious: Yes (Other)
  Sender: FDA-Public Use
  Company Number: CHPA2008US21068

PATIENT
  Age: 73 Year
  Sex: Female

DRUGS (1)
  1. EXCEDRIN (MIGRAINE) [Suspect]
     Dosage: 3 DF IN THE AM, 3 DF AT NIGHT, ORAL
     Route: 048

REACTIONS (3)
  - DRUG DEPENDENCE [None]
  - INCORRECT DOSE ADMINISTERED [None]
  - POOR QUALITY SLEEP [None]
